FAERS Safety Report 6732704-X (Version None)
Quarter: 2010Q2

REPORT INFORMATION
  Report Type: 
  Country: None (occurrence: None)
  Receive Date: 20100514
  Receipt Date: 20100506
  Transmission Date: 20101027
  Serious: Yes (Other)
  Sender: FDA-Public Use
  Company Number: 007516

PATIENT
  Age: 44 Year
  Sex: Female
  Weight: 65 kg

DRUGS (4)
  1. NEUPRO [Suspect]
     Indication: RESTLESS LEGS SYNDROME
     Dosage: (3 MG 1X/24 HOURS TRANSDERMAL)
     Route: 062
     Dates: start: 20091101
  2. COPAXONE [Concomitant]
  3. RIVOTRIL [Concomitant]
  4. CITALOPRAM [Concomitant]

REACTIONS (4)
  - DRUG EFFECT DECREASED [None]
  - NAUSEA [None]
  - URINE OUTPUT INCREASED [None]
  - WEIGHT DECREASED [None]
